FAERS Safety Report 7053910-3 (Version None)
Quarter: 2010Q4

REPORT INFORMATION
  Report Type: 
  Country: None (occurrence: None)
  Receive Date: 20101020
  Receipt Date: 20101014
  Transmission Date: 20110411
  Serious: Yes (Other)
  Sender: FDA-Public Use
  Company Number: TR-BRISTOL-MYERS SQUIBB COMPANY-15261985

PATIENT
  Age: 74 Year
  Sex: Male

DRUGS (1)
  1. WARFARIN SODIUM [Suspect]
     Indication: VENA CAVA INJURY
     Dosage: 1 DOSAGE FORM=1 TABLET

REACTIONS (2)
  - HAEMATOMA [None]
  - NERVE COMPRESSION [None]
